FAERS Safety Report 9152136 (Version 1)
Quarter: 2013Q1

REPORT INFORMATION
  Report Type: Spontaneous
  Country: US (occurrence: US)
  Receive Date: 20130308
  Receipt Date: 20130308
  Transmission Date: 20140127
  Serious: Yes (Disabling, Other)
  Sender: FDA-Public Use
  Company Number: US-ELI_LILLY_AND_COMPANY-US201303000471

PATIENT
  Sex: Male

DRUGS (1)
  1. CIALIS [Suspect]
     Indication: BLOOD PRESSURE
     Dosage: 20 MG, UNKNOWN
     Route: 048

REACTIONS (2)
  - Prostate cancer [Unknown]
  - Off label use [Unknown]
